FAERS Safety Report 24413081 (Version 1)
Quarter: 2024Q4

REPORT INFORMATION
  Report Type: Spontaneous
  Country: US (occurrence: None)
  Receive Date: 20241008
  Receipt Date: 20241008
  Transmission Date: 20250114
  Serious: Yes (Other)
  Sender: Public
  Company Number: None

PATIENT
  Age: 34 Year
  Sex: Female
  Weight: 81 kg

DRUGS (13)
  1. LEVOFLOXACIN [Suspect]
     Active Substance: LEVOFLOXACIN
     Indication: Sinusitis
     Dosage: OTHER QUANTITY : 1 TABLET(S);?FREQUENCY : DAILY;?
     Route: 048
     Dates: start: 20240903, end: 20240912
  2. CRESTOR [Concomitant]
     Active Substance: ROSUVASTATIN CALCIUM
  3. ZETIA [Concomitant]
     Active Substance: EZETIMIBE
  4. PROZAC [Concomitant]
     Active Substance: FLUOXETINE HYDROCHLORIDE
  5. BUSPAR [Concomitant]
     Active Substance: BUSPIRONE HYDROCHLORIDE
  6. PQQ [Concomitant]
  7. NAC [Concomitant]
  8. SELENIUM [Concomitant]
     Active Substance: SELENIUM
  9. MAGNESIUM [Concomitant]
     Active Substance: MAGNESIUM
  10. COENZYME Q10 [Concomitant]
     Active Substance: DIETARY SUPPLEMENT\UBIDECARENONE
  11. Lipisomal Glutathione [Concomitant]
  12. Hyaluronic acid with vitamin C [Concomitant]
  13. VITAMINS [Concomitant]
     Active Substance: VITAMINS

REACTIONS (12)
  - Tendon discomfort [None]
  - Tendon pain [None]
  - Contusion [None]
  - Swelling [None]
  - Pain in extremity [None]
  - Arthralgia [None]
  - Arthralgia [None]
  - Musculoskeletal pain [None]
  - Back pain [None]
  - Arthralgia [None]
  - Neuropathy peripheral [None]
  - Muscle twitching [None]

NARRATIVE: CASE EVENT DATE: 20240906
